FAERS Safety Report 4795342-4 (Version None)
Quarter: 2005Q3

REPORT INFORMATION
  Report Type: 
  Country: None (occurrence: None)
  Receive Date: 20050916
  Receipt Date: 20040813
  Transmission Date: 20060218
  Serious: Yes (Other)
  Sender: FDA-Public Use
  Company Number: US-JNJFOC-20040805584

PATIENT
  Sex: Female
  Weight: 56.6996 kg

DRUGS (1)
  1. TOPAMAX [Suspect]
     Indication: EPILEPSY
     Dosage: 50 MG, 2 IN 1 DAY ORAL; SEE IMAGE
     Route: 048

REACTIONS (4)
  - PAIN [None]
  - PARAESTHESIA [None]
  - PETIT MAL EPILEPSY [None]
  - WEIGHT DECREASED [None]
